FAERS Safety Report 9467668 (Version 1)
Quarter: 2013Q3

REPORT INFORMATION
  Report Type: Spontaneous
  Country: US (occurrence: None)
  Receive Date: 20130819
  Receipt Date: 20130819
  Transmission Date: 20140515
  Serious: Yes (Hospitalization)
  Sender: FDA-Public Use
  Company Number: None

PATIENT
  Age: 41 Year
  Sex: Female

DRUGS (1)
  1. CYCLOBENZAPRINE [Suspect]
     Indication: LIGAMENT SPRAIN

REACTIONS (7)
  - Nervousness [None]
  - Asthenia [None]
  - Speech disorder [None]
  - Coordination abnormal [None]
  - Nausea [None]
  - Vomiting [None]
  - Fatigue [None]
